FAERS Safety Report 22012183 (Version 1)
Quarter: 2023Q1

REPORT INFORMATION
  Report Type: Report from Study
  Country: US (occurrence: US)
  Receive Date: 20230220
  Receipt Date: 20230220
  Transmission Date: 20230417
  Serious: No
  Sender: FDA-Public Use
  Company Number: US-AURINIA PHARMACEUTICALS INC.-AUR-002292

PATIENT
  Sex: Female

DRUGS (1)
  1. LUPKYNIS [Suspect]
     Active Substance: VOCLOSPORIN
     Indication: Lupus nephritis
     Dosage: 23.7 MILLIGRAM, BID
     Route: 048
     Dates: start: 20211016

REACTIONS (6)
  - Ecchymosis [Unknown]
  - Back disorder [Unknown]
  - Urine abnormality [Unknown]
  - Pain [Unknown]
  - Condition aggravated [Unknown]
  - Condition aggravated [Unknown]
